FAERS Safety Report 6669816-5 (Version None)
Quarter: 2010Q2

REPORT INFORMATION
  Report Type: 
  Country: None (occurrence: None)
  Receive Date: 20100402
  Receipt Date: 20100322
  Transmission Date: 20101027
  Serious: Yes (Other)
  Sender: FDA-Public Use
  Company Number: 230554J10BRA

PATIENT
  Age: 44 Year
  Sex: Female

DRUGS (5)
  1. REBIF [Suspect]
     Indication: MULTIPLE SCLEROSIS
     Dosage: 22 MCG, 3 IN 1 WEEKS
     Dates: start: 20080615, end: 20091215
  2. CARBAMAZEPINE [Concomitant]
  3. BACLOFEN [Concomitant]
  4. RISPERIDONE [Concomitant]
  5. FLUOXETINE [Concomitant]

REACTIONS (6)
  - APATHY [None]
  - ASPIRATION [None]
  - BRONCHOPNEUMONIA [None]
  - CHOKING [None]
  - DEPRESSED MOOD [None]
  - SECONDARY PROGRESSIVE MULTIPLE SCLEROSIS [None]
